FAERS Safety Report 11157260 (Version 1)
Quarter: 2015Q2

REPORT INFORMATION
  Report Type: Report from Study
  Country: VE (occurrence: VE)
  Receive Date: 20150602
  Receipt Date: 20150602
  Transmission Date: 20150821
  Serious: Yes (Other)
  Sender: FDA-Public Use
  Company Number: VE-ABBVIE-15K-178-1400586-00

PATIENT
  Age: 63 Year
  Sex: Female
  Weight: 84 kg

DRUGS (1)
  1. HUMIRA [Suspect]
     Active Substance: ADALIMUMAB
     Indication: PSORIATIC ARTHROPATHY
     Route: 058
     Dates: start: 20150325, end: 201504

REACTIONS (2)
  - Bursitis [Recovered/Resolved with Sequelae]
  - Synovial cyst [Recovered/Resolved with Sequelae]

NARRATIVE: CASE EVENT DATE: 201504
